FAERS Safety Report 5156955-3 (Version None)
Quarter: 2006Q4

REPORT INFORMATION
  Report Type: 
  Country: None (occurrence: None)
  Receive Date: 20061124
  Receipt Date: 20061026
  Transmission Date: 20070319
  Serious: Yes (Hospitalization)
  Sender: FDA-Public Use
  Company Number: DE-ROCHE-468757

PATIENT
  Age: 45 Year
  Sex: Male

DRUGS (5)
  1. ROFERON-A [Suspect]
     Indication: MULTIPLE MYELOMA
     Route: 065
     Dates: start: 20060615
  2. ROFERON-A [Suspect]
     Dosage: DOSAGE WAS INCREASED FROM 3 X 1.5 TO 3 X 4.5 MIU PER WEEK ON A NOT REPORTED DATE.
     Route: 065
  3. ROFERON-A [Suspect]
     Route: 065
     Dates: start: 20060907, end: 20061015
  4. ZOMETA [Concomitant]
  5. PENTACARINAT INHALATION [Concomitant]

REACTIONS (1)
  - COELIAC DISEASE [None]
